FAERS Safety Report 5119288-7 (Version None)
Quarter: 2006Q3

REPORT INFORMATION
  Report Type: 
  Country: None (occurrence: None)
  Receive Date: 20060928
  Receipt Date: 20060920
  Transmission Date: 20061208
  Serious: Yes (Hospitalization)
  Sender: FDA-Public Use
  Company Number: 230156

PATIENT
  Age: 43 Year
  Sex: Female
  Weight: 71.4 kg

DRUGS (3)
  1. BEVACIZUMAB (BEVACIZUMAB) PWDR + SOLVENT, INFUSION SOLN, 100MG [Suspect]
     Indication: BREAST CANCER METASTATIC
     Dosage: 10 MG/KG, DAYS 1+15, INTRAVENOUS
     Route: 042
     Dates: start: 20060829
  2. GEMCITABINE [Suspect]
     Indication: BREAST CANCER METASTATIC
     Dosage: 1500 MG/M2, DAYS 1+15, INTRAVENOUS
     Route: 042
     Dates: start: 20060829
  3. PACLITAXEL [Suspect]
     Indication: BREAST CANCER METASTATIC
     Dosage: 90 MG/M2, INTRAVENOUS
     Route: 042
     Dates: start: 20060829

REACTIONS (3)
  - BACTERIA STOOL IDENTIFIED [None]
  - FEBRILE NEUTROPENIA [None]
  - FEELING ABNORMAL [None]
